FAERS Safety Report 9067434 (Version 2)
Quarter: 2013Q1

REPORT INFORMATION
  Report Type: Spontaneous
  Country: BR (occurrence: BR)
  Receive Date: 20130202
  Receipt Date: 20130302
  Transmission Date: 20140127
  Serious: Yes (Death, Hospitalization)
  Sender: FDA-Public Use
  Company Number: BR-B.I. PHARMACEUTICALS,INC./RIDGEFIELD-2013-BR-00076BR

PATIENT
  Age: 95 Year
  Sex: Male
  Weight: 45 kg

DRUGS (3)
  1. SPIRIVA RESPIMAT [Suspect]
     Indication: CHRONIC OBSTRUCTIVE PULMONARY DISEASE
     Dosage: 5 MCG
     Route: 055
     Dates: start: 2011, end: 20130113
  2. DRUGS USED IN DIABETES [Concomitant]
     Indication: DIABETES MELLITUS
  3. ANTIHYPERTENSIVES [Concomitant]
     Indication: HYPERTENSION

REACTIONS (5)
  - Pneumothorax [Fatal]
  - Respiratory arrest [Fatal]
  - Fatigue [Not Recovered/Not Resolved]
  - Oxygen saturation decreased [Not Recovered/Not Resolved]
  - Hypertensive crisis [Not Recovered/Not Resolved]
